FAERS Safety Report 8268819-7 (Version None)
Quarter: 2012Q2

REPORT INFORMATION
  Report Type: 
  Country: None (occurrence: None)
  Receive Date: 20120409
  Receipt Date: 20120404
  Transmission Date: 20120825
  Serious: Yes (Hospitalization)
  Sender: FDA-Public Use
  Company Number: JP-BAYER-2011-005656

PATIENT
  Age: 61 Year
  Sex: Male
  Weight: 64 kg

DRUGS (42)
  1. LASIX [Concomitant]
     Indication: ASCITES
     Dosage: DAILY DOSE 20 MG
     Route: 048
     Dates: start: 20070101
  2. ASPARA K [Concomitant]
     Indication: HYPOKALAEMIA
     Dosage: DAILY DOSE 300 MG
     Route: 048
     Dates: start: 20070101
  3. TATHION [Concomitant]
     Dosage: DAILY DOSE 100 MG
     Dates: start: 20110114, end: 20110114
  4. PROTEIN SUPPLEMENTS [Concomitant]
     Dosage: DAILY DOSE 400 U
     Dates: start: 20110111, end: 20110111
  5. LACTULOSE [Concomitant]
     Dosage: DAILY DOSE 60 ML
     Route: 048
     Dates: start: 20101221
  6. ASPARA K [Concomitant]
     Dosage: DAILY DOSE 900 MG
     Route: 048
     Dates: start: 20100101
  7. LOXONIN [Concomitant]
     Indication: HEADACHE
     Dosage: DAILY DOSE 120 MG
     Route: 048
     Dates: start: 20071123
  8. LOXONIN [Concomitant]
     Dosage: DAILY DOSE 120 MG
     Route: 048
     Dates: start: 20100713
  9. SHAKUYAKUKANZOUTOU [Concomitant]
     Indication: BACK PAIN
     Dosage: DAILY DOSE 3 DF
     Route: 048
  10. ADELAVIN [Concomitant]
     Dosage: DAILY DOSE 0.500 ML
     Route: 042
     Dates: start: 20110114, end: 20110114
  11. FAMOTIDINE [Concomitant]
     Dosage: DAILY DOSE 60 MG
     Route: 042
     Dates: start: 20110112, end: 20110112
  12. ATARAX [Concomitant]
     Dosage: DAILY DOSE 25 MG
     Route: 042
     Dates: start: 20110111, end: 20110111
  13. GLYCERIN [Concomitant]
     Indication: HYPERAMMONAEMIA
     Dosage: DAILY DOSE 120 ML
     Route: 054
     Dates: start: 20110105, end: 20110105
  14. URSO 250 [Concomitant]
     Indication: BILE OUTPUT ABNORMAL
     Dosage: DAILY DOSE 600 MG
     Route: 048
     Dates: start: 20070101
  15. RINDERON-V [Concomitant]
     Indication: PROPHYLAXIS
     Dosage: UNK
     Route: 061
     Dates: start: 20101214
  16. KETOPROFEN [Concomitant]
     Indication: BACK PAIN
     Dosage: UNK
     Route: 062
     Dates: start: 20101206
  17. NEO-MINOPHAGEN C [Concomitant]
     Dosage: DAILY DOSE 40 ML
     Route: 042
     Dates: start: 20110105, end: 20110114
  18. PRIMPERAN TAB [Concomitant]
     Dosage: DAILY DOSE 10 MG
     Route: 042
     Dates: start: 20110111, end: 20110111
  19. LASIX [Concomitant]
     Dosage: DAILY DOSE 20 MG
     Route: 042
     Dates: start: 20110114, end: 20110116
  20. LACTULOSE [Concomitant]
     Dosage: DAILY DOSE 60 ML
     Route: 048
     Dates: start: 20090601, end: 20101218
  21. ZOLPIDEM [Concomitant]
     Indication: INSOMNIA
     Dosage: DAILY DOSE 10 MG
     Route: 048
     Dates: start: 20101207
  22. NEO-MINOPHAGEN C [Concomitant]
     Dosage: DAILY DOSE 60 ML
     Route: 042
     Dates: start: 20101221, end: 20101221
  23. FAMOTIDINE [Concomitant]
     Dosage: DAILY DOSE 40 MG
     Route: 042
     Dates: start: 20110113, end: 20110113
  24. CEFOTIAM HYDROCHLORIDE [Concomitant]
     Dosage: DAILY DOSE 2 G
     Route: 042
     Dates: start: 20110111, end: 20110114
  25. ALBUMINAR [Concomitant]
     Dosage: DAILY DOSE 100 ML
     Route: 042
     Dates: start: 20110114, end: 20110116
  26. SORAFENIB [Suspect]
     Indication: HEPATIC NEOPLASM MALIGNANT
     Dosage: 400 MG, ONCE
     Route: 048
     Dates: start: 20101216, end: 20110105
  27. LASIX [Concomitant]
     Indication: OEDEMA
     Dosage: DAILY DOSE 20 MG
     Route: 048
     Dates: start: 20101207
  28. LACTULOSE [Concomitant]
     Indication: DYSCHEZIA
     Dosage: DAILY DOSE 60 ML
     Route: 048
     Dates: start: 20070101
  29. URSO 250 [Concomitant]
     Dosage: DAILY DOSE 600 MG
     Route: 048
     Dates: start: 20090707
  30. ADELAVIN [Concomitant]
     Dosage: DAILY DOSE 1 ML
     Route: 042
     Dates: start: 20110111, end: 20110113
  31. FAMOTIDINE [Concomitant]
     Dosage: DAILY DOSE 20 MG
     Route: 042
     Dates: start: 20110111, end: 20110111
  32. PENTAZOCINE LACTATE [Concomitant]
     Dosage: DAILY DOSE 15 MG
     Route: 042
     Dates: start: 20110111, end: 20110111
  33. ASPARTATE POTASSIUM [Concomitant]
     Indication: HYPOKALAEMIA
     Dosage: DAILY DOSE 900 MG
     Route: 048
     Dates: start: 20100101
  34. NEO-MINOPHAGEN C [Concomitant]
     Dosage: DAILY DOSE 60 ML
     Route: 042
     Dates: start: 20101223, end: 20101223
  35. TATHION [Concomitant]
     Dosage: DAILY DOSE 200 MG
     Route: 042
     Dates: start: 20110111, end: 20110113
  36. OLDAMIN [Concomitant]
     Dosage: DAILY DOSE 1 G
     Route: 042
     Dates: start: 20110111, end: 20110111
  37. PLATELETS [Concomitant]
     Dosage: DAILY DOSE 10 U
     Route: 042
     Dates: start: 20110111, end: 20110111
  38. FAMOTIDINE [Concomitant]
     Indication: PROPHYLAXIS AGAINST GASTROINTESTINAL ULCER
     Dosage: DAILY DOSE 20 MG
     Route: 048
     Dates: start: 20070101
  39. FAMOTIDINE [Concomitant]
     Dosage: DAILY DOSE 20 MG
     Route: 042
     Dates: start: 20110114, end: 20110114
  40. FAMOTIDINE [Concomitant]
     Dosage: DAILY DOSE 20 MG
     Route: 048
     Dates: start: 20100712
  41. KERATINAMIN [Concomitant]
     Indication: PROPHYLAXIS
     Dosage: UNK
     Route: 061
     Dates: start: 20101209, end: 20110104
  42. PURSENNID [Concomitant]
     Indication: CONSTIPATION
     Dosage: DAILY DOSE 24 MG
     Route: 048
     Dates: start: 20101207, end: 20101218

REACTIONS (2)
  - HYPERAMMONAEMIA [None]
  - HYPERTENSION [None]
